FAERS Safety Report 9169097 (Version 1)
Quarter: 2013Q1

REPORT INFORMATION
  Report Type: Spontaneous
  Country: US (occurrence: US)
  Receive Date: 20130318
  Receipt Date: 20130318
  Transmission Date: 20140127
  Serious: Yes (Other)
  Sender: FDA-Public Use
  Company Number: US-TEVA-391403USA

PATIENT
  Sex: Male
  Weight: 88.64 kg

DRUGS (10)
  1. FOLINIC ACID [Suspect]
     Indication: COLORECTAL CANCER METASTATIC
     Route: 042
     Dates: start: 20130129, end: 20130129
  2. ZALTRAP [Suspect]
     Indication: COLORECTAL CANCER METASTATIC
     Route: 042
     Dates: start: 20130129, end: 20130129
  3. FLUOROURACIL [Suspect]
     Indication: COLORECTAL CANCER METASTATIC
     Route: 042
     Dates: start: 20130116
  4. IRINOTECAN HYDROCHLORIDE [Suspect]
     Indication: COLORECTAL CANCER METASTATIC
     Route: 042
     Dates: start: 20130129, end: 20130129
  5. RANITIDINE [Concomitant]
     Dates: start: 201202
  6. FEOSOL [Concomitant]
     Dates: start: 2006
  7. EMEND [Concomitant]
     Dates: start: 20130129, end: 20130131
  8. ONDANSETRON [Concomitant]
     Dates: start: 20120207
  9. LORAZEPAM [Concomitant]
     Dates: start: 20120207
  10. HYDROCODONE [Concomitant]
     Dates: start: 20120207

REACTIONS (4)
  - Gastrointestinal haemorrhage [Unknown]
  - Headache [Recovered/Resolved]
  - Blood pressure increased [Unknown]
  - Epistaxis [Unknown]
